FAERS Safety Report 6191270-0 (Version None)
Quarter: 2009Q2

REPORT INFORMATION
  Report Type: 
  Country: None (occurrence: None)
  Receive Date: 20090513
  Receipt Date: 20090513
  Transmission Date: 20091009
  Serious: Yes (Other)
  Sender: FDA-Public Use
  Company Number: None

PATIENT
  Age: 52 Year
  Sex: Female
  Weight: 108.8633 kg

DRUGS (2)
  1. CHANTIX [Suspect]
     Indication: SMOKING CESSATION THERAPY
     Dosage: .5 1 DAILY ORAL
     Route: 048
     Dates: start: 20090420
  2. CHANTIX [Suspect]
     Indication: SMOKING CESSATION THERAPY
     Dosage: .5 1 DAILY ORAL
     Route: 048
     Dates: start: 20090421

REACTIONS (4)
  - AGEUSIA [None]
  - ANOSMIA [None]
  - HYPOPHAGIA [None]
  - PAROSMIA [None]
